FAERS Safety Report 4637789-2 (Version None)
Quarter: 2005Q2

REPORT INFORMATION
  Report Type: 
  Country: None (occurrence: None)
  Receive Date: 20050328
  Receipt Date: 20050118
  Transmission Date: 20051028
  Serious: No
  Sender: FDA-Public Use
  Company Number: USA050188636

PATIENT
  Age: 27 Year
  Sex: Female
  Weight: 66 kg

DRUGS (1)
  1. STRATTERA [Suspect]
     Indication: ATTENTION DEFICIT/HYPERACTIVITY DISORDER
     Dosage: 40 MG DAY
     Dates: start: 20041201

REACTIONS (6)
  - DRUG INEFFECTIVE [None]
  - ERYTHEMA [None]
  - OEDEMA PERIPHERAL [None]
  - PARANASAL SINUS HYPERSECRETION [None]
  - PRURITUS [None]
  - SLEEP DISORDER [None]
